FAERS Safety Report 8392554-8 (Version None)
Quarter: 2012Q2

REPORT INFORMATION
  Report Type: 
  Country: None (occurrence: None)
  Receive Date: 20120529
  Receipt Date: 20120521
  Transmission Date: 20120825
  Serious: Yes (Disabling, Other)
  Sender: FDA-Public Use
  Company Number: US-MERCK-1104USA00291

PATIENT
  Age: 69 Year
  Sex: Male
  Weight: 102 kg

DRUGS (44)
  1. PLAVIX [Suspect]
     Route: 065
  2. LOSARTAN POTASSIUM [Concomitant]
     Indication: CARDIAC DISORDER
     Route: 065
  3. LANTUS [Concomitant]
     Indication: DIABETES MELLITUS
     Route: 065
  4. CLOZAPINE [Concomitant]
     Dosage: 200 TO 300 MG
     Route: 065
  5. OXYCODONE [Concomitant]
     Indication: BACK PAIN
     Route: 065
  6. ASPIRIN [Concomitant]
     Route: 065
  7. COREG [Suspect]
     Indication: CARDIAC DISORDER
     Route: 065
  8. DIGOXIN [Concomitant]
     Route: 065
  9. ALLOPURINOL [Concomitant]
     Route: 065
  10. METOPROLOL TARTRATE [Concomitant]
     Route: 065
     Dates: start: 20090101
  11. BILBERRY [Concomitant]
     Route: 065
  12. LIPITOR [Suspect]
     Route: 065
  13. ALPRAZOLAM [Suspect]
     Route: 065
  14. FUROSEMIDE [Concomitant]
     Route: 065
  15. LUMIGAN [Concomitant]
     Indication: ABNORMAL SENSATION IN EYE
     Route: 065
  16. GLYBURIDE [Suspect]
     Indication: DIABETES MELLITUS
     Route: 065
  17. GLUCOPHAGE [Suspect]
     Route: 065
  18. PRAVASTATIN SODIUM [Concomitant]
     Route: 065
  19. OMEGA-3 MARINE TRIGLYCERIDES [Concomitant]
     Route: 065
  20. ZETIA [Suspect]
     Route: 048
  21. CODEINE [Suspect]
     Route: 065
  22. VICODIN [Concomitant]
     Route: 065
  23. TRAMADOL HCL [Suspect]
     Route: 065
  24. REGLAN [Suspect]
     Route: 065
  25. POTASSIUM CHLORIDE [Concomitant]
     Route: 065
  26. VIAGRA [Suspect]
     Route: 065
  27. ZOCOR [Suspect]
     Route: 048
  28. METFORMIN HCL [Suspect]
     Indication: DIABETES MELLITUS
     Route: 065
     Dates: start: 20101018
  29. LOTRIMIN [Suspect]
     Route: 065
  30. FOLIC ACID [Concomitant]
     Route: 065
  31. ADVIL [Suspect]
     Route: 065
     Dates: end: 20100101
  32. TOPROL-XL [Suspect]
     Route: 065
  33. PROZAC [Suspect]
     Route: 065
  34. DIAZEPAM [Concomitant]
     Route: 065
  35. PILOCARPINE [Concomitant]
     Indication: ABNORMAL SENSATION IN EYE
     Route: 065
  36. ISTALOL [Concomitant]
     Indication: ABNORMAL SENSATION IN EYE
     Route: 065
  37. MOTRIN [Suspect]
     Route: 065
  38. XALATAN [Suspect]
     Route: 047
  39. PROSCAR [Suspect]
     Route: 048
  40. RESTASIS [Suspect]
     Route: 065
  41. LUVOX [Suspect]
     Route: 065
  42. ASPIRIN [Concomitant]
     Route: 065
  43. THERA TEARS [Concomitant]
     Route: 065
  44. ADVIL [Suspect]
     Indication: BACK PAIN
     Route: 065
     Dates: start: 20110301, end: 20110301

REACTIONS (14)
  - DYSPNOEA [None]
  - BACK PAIN [None]
  - FATIGUE [None]
  - MYALGIA [None]
  - DRUG HYPERSENSITIVITY [None]
  - BLOOD GLUCOSE INCREASED [None]
  - ASTHENIA [None]
  - ABASIA [None]
  - CHEST DISCOMFORT [None]
  - CONSTIPATION [None]
  - VOMITING [None]
  - NAUSEA [None]
  - ARTHROPATHY [None]
  - SLEEP DISORDER [None]
